FAERS Safety Report 11346700 (Version 1)
Quarter: 2015Q3

REPORT INFORMATION
  Report Type: Spontaneous
  Country: US (occurrence: US)
  Receive Date: 20150803
  Receipt Date: 20150803
  Transmission Date: 20151125
  Serious: No
  Sender: FDA-Public Use
  Company Number: US-ELI_LILLY_AND_COMPANY-US201006007052

PATIENT
  Sex: Male

DRUGS (2)
  1. STRATTERA [Suspect]
     Active Substance: ATOMOXETINE HYDROCHLORIDE
     Dosage: 18 MG, UNK
     Dates: start: 20100622
  2. STRATTERA [Suspect]
     Active Substance: ATOMOXETINE HYDROCHLORIDE
     Indication: DEPRESSION
     Dosage: 8 MG, UNK
     Dates: start: 20100615, end: 20100621

REACTIONS (2)
  - Off label use [Not Recovered/Not Resolved]
  - Premature ejaculation [Not Recovered/Not Resolved]

NARRATIVE: CASE EVENT DATE: 20100615
